FAERS Safety Report 4450236-9 (Version None)
Quarter: 2004Q3

REPORT INFORMATION
  Report Type: 
  Country: None (occurrence: None)
  Receive Date: 20040914
  Receipt Date: 20040831
  Transmission Date: 20050211
  Serious: Yes (Death, Hospitalization)
  Sender: FDA-Public Use
  Company Number: 2004230926JP

PATIENT
  Age: 75 Year
  Sex: Female

DRUGS (4)
  1. CAMPTOSAR [Suspect]
     Indication: LUNG NEOPLASM MALIGNANT
     Dosage: SEE IMAGE, IV DRIP
     Route: 041
     Dates: start: 20040708, end: 20040708
  2. CAMPTOSAR [Suspect]
     Indication: LUNG NEOPLASM MALIGNANT
     Dosage: SEE IMAGE, IV DRIP
     Route: 041
     Dates: start: 20040715, end: 20040715
  3. GEMZAR [Suspect]
     Indication: LUNG NEOPLASM MALIGNANT
     Dosage: 1 MG, 8 DAYS, CYLIC, IV DRIP
     Route: 041
     Dates: start: 20040708, end: 20040715
  4. LOPEMIN [Concomitant]

REACTIONS (2)
  - BLOOD UREA INCREASED [None]
  - CONDITION AGGRAVATED [None]
